FAERS Safety Report 11334709 (Version 5)
Quarter: 2016Q1

REPORT INFORMATION
  Report Type: Spontaneous
  Country: US (occurrence: US)
  Receive Date: 20150804
  Receipt Date: 20160104
  Transmission Date: 20160525
  Serious: Yes (Other)
  Sender: FDA-Public Use
  Company Number: US-009507513-1507USA014188

PATIENT
  Age: 24 Year
  Sex: Female
  Weight: 186.85 kg

DRUGS (3)
  1. NEXPLANON [Suspect]
     Active Substance: ETONOGESTREL
     Indication: CONTRACEPTION
     Dosage: UNK
     Route: 059
  2. NEXPLANON [Suspect]
     Active Substance: ETONOGESTREL
     Dosage: 68MG/ONE ROD PER 3 YEAR
     Route: 059
     Dates: start: 20130829, end: 20150805
  3. NEXPLANON [Suspect]
     Active Substance: ETONOGESTREL
     Dosage: UNK
     Route: 059
     Dates: start: 20150805, end: 20151019

REACTIONS (13)
  - Implant site infection [Recovering/Resolving]
  - Implant site abscess [Unknown]
  - Device expulsion [Recovered/Resolved]
  - Implant site pain [Recovering/Resolving]
  - Localised infection [Recovering/Resolving]
  - Implant site discharge [Recovering/Resolving]
  - Infection [Recovering/Resolving]
  - Device difficult to use [Recovered/Resolved]
  - Gastric bypass [Unknown]
  - Excessive granulation tissue [Recovering/Resolving]
  - Device breakage [Recovered/Resolved]
  - Menstruation irregular [Recovering/Resolving]
  - Implant site erythema [Unknown]

NARRATIVE: CASE EVENT DATE: 20150805
